FAERS Safety Report 13139330 (Version 1)
Quarter: 2017Q1

REPORT INFORMATION
  Report Type: Spontaneous
  Country: US (occurrence: US)
  Receive Date: 20170123
  Receipt Date: 20170123
  Transmission Date: 20170428
  Serious: Yes (Other)
  Sender: FDA-Public Use
  Company Number: US-PFIZER INC-2017024997

PATIENT
  Age: 4 Decade
  Sex: Female
  Weight: 61.23 kg

DRUGS (7)
  1. LYRICA [Suspect]
     Active Substance: PREGABALIN
     Indication: FIBROMYALGIA
     Dosage: 100 MG, 4X/DAY
     Route: 048
  2. LYRICA [Suspect]
     Active Substance: PREGABALIN
     Dosage: 150 MG, 2X/DAY
     Route: 048
  3. LYRICA [Suspect]
     Active Substance: PREGABALIN
     Dosage: UNK
     Route: 048
     Dates: end: 2016
  4. LYRICA [Suspect]
     Active Substance: PREGABALIN
     Dosage: 150 MG, 1X/DAY
     Route: 048
     Dates: start: 2016
  5. LYRICA [Suspect]
     Active Substance: PREGABALIN
     Dosage: 100 MG, 1X/DAY
     Route: 048
     Dates: start: 20161221
  6. LYRICA [Suspect]
     Active Substance: PREGABALIN
     Dosage: 50 MG, UNK
     Route: 048
  7. PREGABALIN. [Suspect]
     Active Substance: PREGABALIN
     Indication: FIBROMYALGIA
     Dosage: 100 MG, 4X/DAY
     Route: 048

REACTIONS (31)
  - Swelling [Recovering/Resolving]
  - Dizziness [Recovering/Resolving]
  - Temperature intolerance [Unknown]
  - Tooth disorder [Recovered/Resolved]
  - Gait disturbance [Unknown]
  - Decreased interest [Unknown]
  - Neoplasm skin [Recovering/Resolving]
  - Colitis [Not Recovered/Not Resolved]
  - Dysstasia [Unknown]
  - Dyspnoea [Not Recovered/Not Resolved]
  - Blood cholesterol increased [Not Recovered/Not Resolved]
  - Intentional product misuse [Unknown]
  - Stomatitis [Recovered/Resolved]
  - Nausea [Not Recovered/Not Resolved]
  - Swollen tongue [Recovered/Resolved]
  - Brain injury [Not Recovered/Not Resolved]
  - Confusional state [Unknown]
  - Vaginal leukoplakia [Unknown]
  - Vaginal neoplasm [Unknown]
  - Depression [Not Recovered/Not Resolved]
  - Incontinence [Recovering/Resolving]
  - Blood pressure increased [Not Recovered/Not Resolved]
  - Feeling hot [Unknown]
  - Fatigue [Unknown]
  - Decreased appetite [Unknown]
  - Feeling drunk [Unknown]
  - Pruritus [Not Recovered/Not Resolved]
  - Loss of libido [Recovering/Resolving]
  - Photophobia [Unknown]
  - Mouth swelling [Recovered/Resolved]
  - Erythema [Unknown]

NARRATIVE: CASE EVENT DATE: 2014
